FAERS Safety Report 4806146-8 (Version None)
Quarter: 2005Q4

REPORT INFORMATION
  Report Type: 
  Country: None (occurrence: None)
  Receive Date: 20051019
  Receipt Date: 20051013
  Transmission Date: 20060501
  Serious: Yes (Life-Threatening)
  Sender: FDA-Public Use
  Company Number: 2005-133568-NL

PATIENT
  Age: 51 Year
  Sex: Male

DRUGS (4)
  1. PANCURONIUM BROMIDE [Suspect]
     Dosage: INTRAVENOUS (NOS)
     Route: 042
     Dates: start: 20050621, end: 20050621
  2. PROPOFOL [Suspect]
     Dosage: INTRAVENOUS (NOS)
     Route: 042
     Dates: start: 20050621, end: 20050621
  3. REMIFENTANIL [Suspect]
     Dosage: INTRAVENOUS NOS
     Route: 042
     Dates: start: 20050621, end: 20050621
  4. CEFUROXIME AXETIL [Suspect]
     Dosage: INTRANVEOUS NOS
     Route: 042
     Dates: start: 20050621, end: 20050621

REACTIONS (3)
  - ANAPHYLACTIC REACTION [None]
  - BLOOD IMMUNOGLOBULIN E INCREASED [None]
  - SKIN TEST POSITIVE [None]
